FAERS Safety Report 7803128-9 (Version None)
Quarter: 2011Q4

REPORT INFORMATION
  Report Type: 
  Country: None (occurrence: None)
  Receive Date: 20111007
  Receipt Date: 20111004
  Transmission Date: 20120403
  Serious: Yes (Death)
  Sender: FDA-Public Use
  Company Number: PHEH2011US04409

PATIENT
  Sex: Male
  Weight: 93 kg

DRUGS (13)
  1. GLEEVEC [Suspect]
     Indication: SMALL INTESTINE CARCINOMA
     Dosage: 400 MG, DAILY
     Route: 048
     Dates: start: 20110624
  2. FUROSEMIDE [Concomitant]
  3. TEMAZEPAM [Concomitant]
  4. MULTIVITES [Concomitant]
  5. BISOPROLOL [Concomitant]
  6. PREVACID [Concomitant]
  7. BENICAR [Concomitant]
  8. FLONASE [Concomitant]
  9. LEXAPRO [Concomitant]
  10. ASPIRIN [Concomitant]
  11. FEXOFENADINE [Concomitant]
  12. KLOR-CON [Concomitant]
  13. GLUCOSAMINE [Concomitant]

REACTIONS (4)
  - INTESTINAL OBSTRUCTION [None]
  - GASTROINTESTINAL STROMAL TUMOUR [None]
  - DRUG RESISTANCE [None]
  - NEOPLASM MALIGNANT [None]
